FAERS Safety Report 5259009-0 (Version None)
Quarter: 2007Q1

REPORT INFORMATION
  Report Type: 
  Country: None (occurrence: None)
  Receive Date: 20070308
  Receipt Date: 20070226
  Transmission Date: 20070707
  Serious: Yes (Other)
  Sender: FDA-Public Use
  Company Number: PHBS2005CN17673

PATIENT
  Age: 28 Year
  Sex: Female

DRUGS (1)
  1. LOTENSIN [Suspect]
     Indication: NEPHROPATHY
     Dosage: 10 MG, QD
     Route: 048
     Dates: start: 20030101

REACTIONS (3)
  - CAESAREAN SECTION [None]
  - DRUG EXPOSURE DURING PREGNANCY [None]
  - NORMAL NEWBORN [None]
